FAERS Safety Report 4355049-4 (Version None)
Quarter: 2004Q2

REPORT INFORMATION
  Report Type: 
  Country: None (occurrence: None)
  Receive Date: 20040504
  Receipt Date: 20040418
  Transmission Date: 20050107
  Serious: Yes (Other)
  Sender: FDA-Public Use
  Company Number: K200400650

PATIENT
  Sex: Female

DRUGS (2)
  1. ALTACE [Suspect]
     Dosage: ORAL
     Route: 048
  2. BENICAR [Suspect]

REACTIONS (3)
  - COUGH [None]
  - ENDOMETRIAL CANCER [None]
  - PRE-EXISTING CONDITION IMPROVED [None]
